FAERS Safety Report 5574148-2 (Version None)
Quarter: 2007Q4

REPORT INFORMATION
  Report Type: 
  Country: None (occurrence: None)
  Receive Date: 20071221
  Receipt Date: 20071214
  Transmission Date: 20080405
  Serious: Yes (Hospitalization)
  Sender: FDA-Public Use
  Company Number: 2007S1013396

PATIENT
  Age: 87 Year
  Sex: Female

DRUGS (9)
  1. PROPRANOLOL HYDROCHLORIDE [Suspect]
     Indication: ESSENTIAL TREMOR
     Dosage: 40 MG, TWICE A DAY; ORAL
     Route: 048
     Dates: start: 20070720, end: 20070101
  2. HYDROCODONE BITARTRATE [Concomitant]
  3. CELEBREX [Concomitant]
  4. AMBIEN [Concomitant]
  5. DIPYRIDAMOLE [Concomitant]
  6. ZOLOFT [Concomitant]
  7. LISINOPRIL [Concomitant]
  8. ADVIL LIQUI-GELS [Concomitant]
  9. CARBAMAZEPINE [Concomitant]

REACTIONS (6)
  - BALANCE DISORDER [None]
  - CONTUSION [None]
  - ESSENTIAL TREMOR [None]
  - FACIAL BONES FRACTURE [None]
  - FALL [None]
  - LABILE BLOOD PRESSURE [None]
